FAERS Safety Report 15486824 (Version 2)
Quarter: 2019Q1

REPORT INFORMATION
  Report Type: Spontaneous
  Country: US (occurrence: US)
  Receive Date: 20181011
  Receipt Date: 20190107
  Transmission Date: 20190417
  Serious: No
  Sender: FDA-Public Use
  Company Number: US-ACLARIS THERAPEUTICS-2018US007248

PATIENT

DRUGS (1)
  1. ESKATA [Suspect]
     Active Substance: HYDROGEN PEROXIDE
     Indication: SEBORRHOEIC KERATOSIS
     Dosage: 1 DF, UNK
     Route: 061
     Dates: start: 20180711, end: 20180711

REACTIONS (5)
  - Swelling [Not Recovered/Not Resolved]
  - Scab [Not Recovered/Not Resolved]
  - Macule [Recovering/Resolving]
  - Product complaint [Unknown]
  - Drug ineffective [Unknown]

NARRATIVE: CASE EVENT DATE: 20180711
